FAERS Safety Report 4307622-7 (Version None)
Quarter: 2004Q1

REPORT INFORMATION
  Report Type: 
  Country: None (occurrence: None)
  Receive Date: 20040226
  Receipt Date: 20040213
  Transmission Date: 20041129
  Serious: Yes (Hospitalization, Other)
  Sender: FDA-Public Use
  Company Number: 2004007566

PATIENT
  Age: 52 Year
  Sex: Male

DRUGS (4)
  1. LIPITOR [Suspect]
     Indication: HYPERLIPIDAEMIA
     Dosage: 10 MG (DAILY), ORAL
     Route: 048
     Dates: start: 20030901
  2. ACETYLSALICYLIC ACID SRT [Concomitant]
  3. WARFARIN POTASSIUM (WARFARIN POTASSIUM) [Concomitant]
  4. NITROGLYCERIN [Concomitant]

REACTIONS (2)
  - HYPOTHYROIDISM [None]
  - RHABDOMYOLYSIS [None]
